FAERS Safety Report 5267984-3 (Version None)
Quarter: 2007Q1

REPORT INFORMATION
  Report Type: 
  Country: None (occurrence: None)
  Receive Date: 20061214
  Receipt Date: 20060224
  Transmission Date: 20070707
  Serious: Yes (Other)
  Sender: FDA-Public Use
  Company Number: 2006028326

PATIENT
  Sex: Female

DRUGS (3)
  1. XANAX [Suspect]
     Indication: ANXIETY
  2. XANAX [Suspect]
     Indication: DEPRESSION
  3. XANAX [Suspect]
     Indication: NERVOUSNESS

REACTIONS (1)
  - DRUG DEPENDENCE [None]
